FAERS Safety Report 23518302 (Version 1)
Quarter: 2024Q1

REPORT INFORMATION
  Report Type: Spontaneous
  Country: US (occurrence: None)
  Receive Date: 20240213
  Receipt Date: 20240213
  Transmission Date: 20240409
  Serious: Yes (Disabling)
  Sender: FDA-Public Use
  Company Number: None

PATIENT
  Age: 27 Year
  Sex: Female
  Weight: 65.25 kg

DRUGS (6)
  1. LEVOFLOXACIN [Suspect]
     Active Substance: LEVOFLOXACIN
     Indication: Urinary tract infection
     Dosage: OTHER QUANTITY : 1 TABLET(S);?FREQUENCY : DAILY;?
     Route: 048
     Dates: start: 20240102, end: 20240103
  2. VITAMIN B [Concomitant]
     Active Substance: VITAMIN B
  3. VITAMIN D NOS [Concomitant]
     Active Substance: VITAMIN D NOS
  4. VITAMIN C [Concomitant]
     Active Substance: ASCORBIC ACID
  5. Magnieseium [Concomitant]
  6. COENZYME Q10 [Concomitant]
     Active Substance: DIETARY SUPPLEMENT\UBIDECARENONE

REACTIONS (12)
  - Limb injury [None]
  - Muscle strain [None]
  - Joint swelling [None]
  - Pain [None]
  - Neuralgia [None]
  - Insomnia [None]
  - Joint injury [None]
  - Neck injury [None]
  - Tendonitis [None]
  - Pain [None]
  - Dyskinesia [None]
  - Muscle twitching [None]

NARRATIVE: CASE EVENT DATE: 20240105
